FAERS Safety Report 10233206 (Version 1)
Quarter: 2014Q2

REPORT INFORMATION
  Report Type: Spontaneous
  Country: US (occurrence: None)
  Receive Date: 20140611
  Receipt Date: 20140611
  Transmission Date: 20141212
  Serious: Yes (Death, Hospitalization)
  Sender: FDA-Public Use
  Company Number: None

PATIENT
  Age: 57 Year
  Sex: Female
  Weight: 42 kg

DRUGS (3)
  1. CARBOPLATIN [Suspect]
  2. PACLITAXEL [Suspect]
  3. BEVACIZUMAB [Suspect]

REACTIONS (5)
  - Lethargy [None]
  - Fatigue [None]
  - Neutropenia [None]
  - Dehydration [None]
  - Anaemia [None]
